FAERS Safety Report 10428533 (Version 1)
Quarter: 2014Q3

REPORT INFORMATION
  Report Type: Spontaneous
  Country: CH (occurrence: CH)
  Receive Date: 20140903
  Receipt Date: 20140903
  Transmission Date: 20150326
  Serious: Yes (Life-Threatening, Hospitalization)
  Sender: FDA-Public Use
  Company Number: CH-PFIZER INC-2014240580

PATIENT
  Age: 23 Year
  Sex: Male

DRUGS (9)
  1. PASPERTIN [Suspect]
     Active Substance: METOCLOPRAMIDE HYDROCHLORIDE
     Indication: NAUSEA
     Dosage: UNK
     Dates: start: 20140705
  2. DORMICUM [Concomitant]
     Active Substance: MIDAZOLAM\MIDAZOLAM HYDROCHLORIDE
     Indication: SEDATION
     Dosage: 10 MG, 1X/DAY
     Dates: start: 20140705
  3. PIPERACILLIN/TAZOBACTAM [Concomitant]
     Indication: STAPHYLOCOCCAL SEPSIS
     Dosage: UNK
     Dates: start: 20140704, end: 20140711
  4. FLOXAPEN [Suspect]
     Active Substance: FLUCLOXACILLIN
     Indication: STAPHYLOCOCCAL SEPSIS
     Dosage: UNK
     Dates: start: 20140706, end: 20140715
  5. ZANTAC [Concomitant]
     Active Substance: RANITIDINE HYDROCHLORIDE
     Dosage: UNK
     Dates: end: 20140711
  6. PIPERACILLIN/TAZOBACTAM [Concomitant]
     Indication: PNEUMONIA
  7. DALACIN C [Suspect]
     Active Substance: CLINDAMYCIN PHOSPHATE
     Indication: STAPHYLOCOCCAL SEPSIS
     Dosage: 900 MG, 3X/DAY, 1 PER 8 HOURS
     Dates: start: 20140706, end: 20140715
  8. TAVANIC [Suspect]
     Active Substance: LEVOFLOXACIN
     Indication: PNEUMONIA
  9. TAVANIC [Suspect]
     Active Substance: LEVOFLOXACIN
     Indication: STAPHYLOCOCCAL SEPSIS
     Dosage: UNK
     Dates: start: 20140704, end: 20140711

REACTIONS (2)
  - Electrocardiogram QT prolonged [Unknown]
  - Tachycardia [Unknown]

NARRATIVE: CASE EVENT DATE: 20140711
